FAERS Safety Report 17568495 (Version 3)
Quarter: 2020Q2

REPORT INFORMATION
  Report Type: Spontaneous
  Country: ES (occurrence: ES)
  Receive Date: 20200320
  Receipt Date: 20200422
  Transmission Date: 20200713
  Serious: Yes (Other)
  Sender: FDA-Public Use
  Company Number: ES-009507513-2003ESP007672

PATIENT
  Age: 58 Year
  Sex: Male

DRUGS (9)
  1. RIFAMPIN. [Suspect]
     Active Substance: RIFAMPIN
     Indication: ENDOCARDITIS
     Dosage: UNK
  2. IMIPENEM [Suspect]
     Active Substance: IMIPENEM
     Indication: ENDOCARDITIS
     Dosage: UNK
  3. SOLTRIM (SULFAMETHOXAZOLE (+) TRIMETHOPRIM) [Suspect]
     Active Substance: SULFAMETHOXAZOLE\TRIMETHOPRIM
     Indication: ENDOCARDITIS
     Dosage: UNK
  4. CEFTAZIDIME. [Suspect]
     Active Substance: CEFTAZIDIME
     Indication: ENDOCARDITIS
     Dosage: UNK
  5. MEROPENEM. [Suspect]
     Active Substance: MEROPENEM
     Indication: ENDOCARDITIS
     Dosage: UNK
     Dates: start: 20200211
  6. SIVEXTRO [Suspect]
     Active Substance: TEDIZOLID PHOSPHATE
     Indication: ENDOCARDITIS BACTERIAL
     Dosage: UNK
     Route: 042
     Dates: start: 20200217, end: 2020
  7. CUBICIN [Suspect]
     Active Substance: DAPTOMYCIN
     Indication: ENDOCARDITIS
     Dosage: UNK
     Dates: start: 20200117, end: 202002
  8. AMIKACIN. [Suspect]
     Active Substance: AMIKACIN
     Indication: ENDOCARDITIS
     Dosage: UNK
  9. LINEZOLID. [Suspect]
     Active Substance: LINEZOLID
     Indication: ENDOCARDITIS
     Dosage: UNK
     Dates: start: 20200211, end: 20200217

REACTIONS (15)
  - Embolic cerebral infarction [Unknown]
  - Wound drainage [Unknown]
  - Cardiac valve vegetation [Unknown]
  - Vascular pseudoaneurysm thrombosis [Unknown]
  - Haemoperitoneum [Unknown]
  - Thrombocytopenia [Recovered/Resolved]
  - Hepatic lesion [Unknown]
  - Nocardiosis [Unknown]
  - Shock haemorrhagic [Unknown]
  - Anaemia [Recovered/Resolved]
  - Product use in unapproved indication [Unknown]
  - Brain abscess [Unknown]
  - Multiple organ dysfunction syndrome [Recovered/Resolved]
  - Bradyphrenia [Unknown]
  - Cardiac operation [Unknown]

NARRATIVE: CASE EVENT DATE: 20020217
